FAERS Safety Report 7756644-2 (Version None)
Quarter: 2011Q3

REPORT INFORMATION
  Report Type: 
  Country: None (occurrence: None)
  Receive Date: 20110825
  Receipt Date: 20100719
  Transmission Date: 20111222
  Serious: Yes (Other)
  Sender: FDA-Public Use
  Company Number: 103232

PATIENT
  Age: 52 Year
  Sex: Male
  Weight: 95.709 kg

DRUGS (1)
  1. ETOPOSIDE [Suspect]
     Indication: NEOPLASM MALIGNANT

REACTIONS (3)
  - SYNCOPE [None]
  - JAUNDICE [None]
  - HYPERBILIRUBINAEMIA [None]
